FAERS Safety Report 24528062 (Version 1)
Quarter: 2024Q4

REPORT INFORMATION
  Report Type: Spontaneous
  Country: US (occurrence: US)
  Receive Date: 20241021
  Receipt Date: 20241021
  Transmission Date: 20250115
  Serious: Yes (Hospitalization, Other)
  Sender: ESKAYEF PHARMACEUTICALS LIMITED
  Company Number: US-SKF-000141

PATIENT
  Age: 45 Year
  Sex: Male

DRUGS (11)
  1. BUPRENORPHINE\NALOXONE [Suspect]
     Active Substance: BUPRENORPHINE\NALOXONE
     Indication: Drug use disorder
     Dosage: 16 MG/4 MG DAILY
     Route: 065
  2. AMITRIPTYLINE [Suspect]
     Active Substance: AMITRIPTYLINE
     Indication: Drug use disorder
     Dosage: 75 MG DAILY
     Route: 065
  3. FENTANYL [Suspect]
     Active Substance: FENTANYL
     Indication: Endotracheal intubation
     Dosage: 2 MCG/KG INTRAVENOUS
     Route: 042
  4. FENTANYL [Suspect]
     Active Substance: FENTANYL
     Indication: Endotracheal intubation
     Dosage: 0.7 TO 1 MCG/KG/H
     Route: 041
  5. FENTANYL [Suspect]
     Active Substance: FENTANYL
     Indication: Sedation
     Dosage: 2 MCG/KG INTRAVENOUS
     Route: 042
  6. FENTANYL [Suspect]
     Active Substance: FENTANYL
     Indication: Sedation
     Dosage: 0.7 TO 1 MCG/KG/H
     Route: 041
  7. PROPOFOL [Concomitant]
     Active Substance: PROPOFOL
     Indication: Endotracheal intubation
     Dosage: 3 MG/KG
     Route: 065
  8. PROPOFOL [Concomitant]
     Active Substance: PROPOFOL
     Indication: Endotracheal intubation
     Dosage: 1 TO 3 MG/KG/H
     Route: 065
  9. PROPOFOL [Concomitant]
     Active Substance: PROPOFOL
     Indication: Sedation
     Dosage: 3 MG/KG
     Route: 065
  10. PROPOFOL [Concomitant]
     Active Substance: PROPOFOL
     Indication: Sedation
     Dosage: 1 TO 3 MG/KG/H
     Route: 065
  11. PREGABALIN [Suspect]
     Active Substance: PREGABALIN
     Indication: Drug use disorder
     Route: 065

REACTIONS (2)
  - Serotonin syndrome [Recovered/Resolved]
  - Atelectasis [Unknown]
